FAERS Safety Report 9637582 (Version 3)
Quarter: 2014Q2

REPORT INFORMATION
  Report Type: Spontaneous
  Country: AT (occurrence: AT)
  Receive Date: 20131022
  Receipt Date: 20140515
  Transmission Date: 20141212
  Serious: Yes (Hospitalization)
  Sender: FDA-Public Use
  Company Number: AT-ASTRAZENECA-2013SE75839

PATIENT
  Age: 64 Year
  Sex: Female
  Weight: 120 kg

DRUGS (15)
  1. SEROQUEL XR [Suspect]
     Route: 048
     Dates: start: 201101
  2. FENTANYL [Interacting]
     Route: 065
     Dates: start: 201301
  3. PAROXAT [Interacting]
     Route: 065
     Dates: start: 20130901, end: 20130912
  4. LYRICA [Interacting]
     Route: 065
     Dates: start: 2009
  5. PRAXITEN [Interacting]
     Dosage: 100-150 MG DAILY
     Route: 065
     Dates: start: 2011
  6. SAROTEN [Interacting]
     Dates: start: 20130719, end: 20130721
  7. SAROTEN [Interacting]
     Dates: start: 20130722, end: 20130722
  8. SAROTEN [Interacting]
     Dates: start: 20130723, end: 20130914
  9. EUTHYROX [Concomitant]
     Dates: start: 2000
  10. AMLODIPINE [Concomitant]
     Dates: start: 2004
  11. PANTOLOC [Concomitant]
     Dates: start: 2004
  12. GLUCOPHAGE [Concomitant]
     Dates: start: 2011
  13. AMELIOR [Concomitant]
     Dosage: 20/5 MG DAILY
     Dates: start: 2011
  14. SIMVASTATIN [Concomitant]
     Dates: start: 2011
  15. DIAMICRON [Concomitant]
     Dates: start: 2012

REACTIONS (3)
  - Drug interaction [Recovering/Resolving]
  - Toxicity to various agents [Recovering/Resolving]
  - Altered state of consciousness [Recovered/Resolved]
